FAERS Safety Report 7721117-X (Version None)
Quarter: 2011Q3

REPORT INFORMATION
  Report Type: 
  Country: None (occurrence: None)
  Receive Date: 20110831
  Receipt Date: 20110829
  Transmission Date: 20111222
  Serious: Yes (Hospitalization)
  Sender: FDA-Public Use
  Company Number: FI-TEVA-298590ISR

PATIENT
  Age: 43 Year
  Sex: Female

DRUGS (3)
  1. ATENOLOL [Suspect]
     Indication: TACHYCARDIA
     Dosage: 25 MILLIGRAM;
     Route: 048
     Dates: start: 20110601, end: 20110701
  2. CLOZAPINE [Interacting]
     Dosage: 500 MILLIGRAM;
     Route: 048
     Dates: start: 20050101
  3. ABILIFY [Concomitant]

REACTIONS (3)
  - DRUG INTERACTION [None]
  - DIZZINESS [None]
  - HYPOTENSION [None]
